FAERS Safety Report 9669977 (Version 1)
Quarter: 2013Q4

REPORT INFORMATION
  Report Type: Spontaneous
  Country: JP (occurrence: JP)
  Receive Date: 20131105
  Receipt Date: 20131105
  Transmission Date: 20140711
  Serious: Yes (Hospitalization)
  Sender: FDA-Public Use
  Company Number: JP-GLAXOSMITHKLINE-B0938144A

PATIENT
  Age: 84 Year
  Sex: Male

DRUGS (3)
  1. VALTREX [Suspect]
     Indication: PRODUCT USED FOR UNKNOWN INDICATION
     Route: 048
     Dates: end: 201310
  2. LYRICA [Concomitant]
     Route: 048
  3. CELECOX [Concomitant]
     Route: 048

REACTIONS (8)
  - Meningitis [Unknown]
  - Electrolyte imbalance [Unknown]
  - Hyponatraemia [Unknown]
  - Condition aggravated [Unknown]
  - Nausea [Unknown]
  - Aggression [Unknown]
  - Verbal abuse [Unknown]
  - Eyelid oedema [Unknown]
